FAERS Safety Report 21748782 (Version 1)
Quarter: 2022Q4

REPORT INFORMATION
  Report Type: Spontaneous
  Country: DK (occurrence: DK)
  Receive Date: 20221219
  Receipt Date: 20221219
  Transmission Date: 20230113
  Serious: Yes (Other)
  Sender: FDA-Public Use
  Company Number: None

PATIENT
  Age: 39 Year
  Sex: Male

DRUGS (1)
  1. ZYPREXA [Suspect]
     Active Substance: OLANZAPINE
     Indication: Schizophrenia
     Dosage: DOSAGE: VARYING FROM 15 MG
     Route: 065

REACTIONS (23)
  - Gingival bleeding [Recovered/Resolved]
  - Neck pain [Unknown]
  - Confusional state [Unknown]
  - Neuralgia [Unknown]
  - Blood urine present [Recovered/Resolved]
  - Myalgia [Unknown]
  - Haematochezia [Recovered/Resolved]
  - Nerve injury [Unknown]
  - Dysgeusia [Unknown]
  - Testicular pain [Recovered/Resolved]
  - Hypoaesthesia [Unknown]
  - Chest pain [Unknown]
  - Headache [Unknown]
  - Diarrhoea [Unknown]
  - Dyspepsia [Unknown]
  - Pain in extremity [Unknown]
  - Memory impairment [Not Recovered/Not Resolved]
  - Nausea [Unknown]
  - Rash [Unknown]
  - Arthralgia [Not Recovered/Not Resolved]
  - Vomiting [Unknown]
  - Drug withdrawal syndrome [Unknown]
  - Fatigue [Unknown]

NARRATIVE: CASE EVENT DATE: 20120101
